FAERS Safety Report 5182318-0 (Version None)
Quarter: 2006Q4

REPORT INFORMATION
  Report Type: 
  Country: None (occurrence: None)
  Receive Date: 20061220
  Receipt Date: 20060719
  Transmission Date: 20070319
  Serious: No
  Sender: FDA-Public Use
  Company Number: US-GLAXOSMITHKLINE-A0612769A

PATIENT
  Age: 70 Year
  Sex: Female

DRUGS (2)
  1. COMMIT [Suspect]
     Route: 048
     Dates: start: 20060710
  2. STOOL SOFTENER [Concomitant]

REACTIONS (2)
  - ACCIDENTAL EXPOSURE [None]
  - MALAISE [None]
